FAERS Safety Report 18232227 (Version 3)
Quarter: 2020Q4

REPORT INFORMATION
  Report Type: Spontaneous
  Country: US (occurrence: US)
  Receive Date: 20200904
  Receipt Date: 20201008
  Transmission Date: 20210113
  Serious: No
  Sender: FDA-Public Use
  Company Number: US-GLAXOSMITHKLINE-US2020AMR174245

PATIENT
  Age: 62 Year
  Sex: Female

DRUGS (1)
  1. NUCALA [Suspect]
     Active Substance: MEPOLIZUMAB
     Indication: ASTHMA
     Dosage: 100 MG/ML, CYC
     Route: 065

REACTIONS (9)
  - Pain of skin [Unknown]
  - Exposure via skin contact [Unknown]
  - Device issue [Unknown]
  - Rash erythematous [Unknown]
  - Accidental exposure to product [Unknown]
  - Contusion [Recovering/Resolving]
  - Rash macular [Unknown]
  - Pain in extremity [Unknown]
  - Product complaint [Unknown]

NARRATIVE: CASE EVENT DATE: 20200825
